FAERS Safety Report 23146068 (Version 1)
Quarter: 2023Q4

REPORT INFORMATION
  Report Type: Spontaneous
  Country: GB (occurrence: GB)
  Receive Date: 20231104
  Receipt Date: 20231104
  Transmission Date: 20240109
  Serious: Yes (Other)
  Sender: FDA-Public Use
  Company Number: GB-MHRA-ADR 28276585

PATIENT
  Age: 70 Year
  Sex: Female

DRUGS (2)
  1. DULOXETINE [Suspect]
     Active Substance: DULOXETINE
     Indication: Neuropathy peripheral
     Dosage: 20 MILLIGRAM
     Route: 065
     Dates: end: 202305
  2. ACETAMINOPHEN [Concomitant]
     Active Substance: ACETAMINOPHEN
     Indication: Pain
     Dosage: UNK
     Route: 065

REACTIONS (8)
  - Depression suicidal [Recovering/Resolving]
  - Medication error [Unknown]
  - Agitated depression [Recovering/Resolving]
  - Hyperhidrosis [Recovering/Resolving]
  - Palpitations [Recovering/Resolving]
  - Sleep disorder [Recovering/Resolving]
  - Vertigo [Not Recovered/Not Resolved]
  - Tinnitus [Not Recovered/Not Resolved]

NARRATIVE: CASE EVENT DATE: 20230122
